FAERS Safety Report 5856789-8 (Version None)
Quarter: 2008Q3

REPORT INFORMATION
  Report Type: 
  Country: None (occurrence: None)
  Receive Date: 20080725
  Receipt Date: 20080725
  Transmission Date: 20090109
  Serious: Yes (Hospitalization)
  Sender: FDA-Public Use
  Company Number: None

PATIENT
  Sex: Male

DRUGS (1)
  1. VIDAZA [Suspect]

REACTIONS (4)
  - CELLULITIS [None]
  - DISEASE PROGRESSION [None]
  - LIMB INJURY [None]
  - NEUTROPENIA [None]
